FAERS Safety Report 6498421-9 (Version None)
Quarter: 2009Q4

REPORT INFORMATION
  Report Type: 
  Country: None (occurrence: None)
  Receive Date: 20091127
  Receipt Date: 20091021
  Transmission Date: 20100525
  Serious: Yes (Life-Threatening, Hospitalization)
  Sender: FDA-Public Use
  Company Number: 283969

PATIENT
  Age: 52 Year
  Sex: Male
  Weight: 66.7 kg

DRUGS (2)
  1. NOVOLOG [Suspect]
     Indication: TYPE 1 DIABETES MELLITUS
     Dosage: 2 IU, TID, SUBCUTANEOUS : 3 IU AT 7 PM : 2 IU AT 10 PM
     Route: 058
     Dates: start: 20080819, end: 20080819
  2. LANTUS [Suspect]
     Indication: TYPE 1 DIABETES MELLITUS
     Dosage: 18 IU, QD, SUBCUTANEOUS;16 IU, QD, SUBCUTANEOUS;14 LU, QD, SUBCUTANEOUS;12 IU, QD, SUBCUTANEOUS
     Route: 058

REACTIONS (5)
  - CONFUSIONAL STATE [None]
  - DIZZINESS [None]
  - HYPOGLYCAEMIA [None]
  - HYPOGLYCAEMIC SEIZURE [None]
  - HYPOGLYCAEMIC UNCONSCIOUSNESS [None]
